FAERS Safety Report 10237011 (Version 1)
Quarter: 2014Q1

REPORT INFORMATION
  Report Type: Spontaneous
  Country: US (occurrence: None)
  Receive Date: 20140306
  Receipt Date: 20140306
  Transmission Date: 20141002
  Serious: Yes (Hospitalization)
  Sender: FDA-Public Use
  Company Number: 163-21880-13054739

PATIENT
  Age: 59 Year
  Sex: Male

DRUGS (10)
  1. REVLIMID (LENALIDOMIDE) (25 MILLIGRAM, CAPSULES) [Suspect]
     Indication: PLASMA CELL MYELOMA
     Dosage: UKN
     Route: 048
     Dates: start: 20130514
  2. ALBUTEROL SULFATE (SALBUTAMOL SULFATE) (UNKNOWN) [Concomitant]
  3. AMBIEN (ZOLPIDEM TARTRATE) (UNKOWN) [Concomitant]
  4. AVODART (DUTASTERIDE) (UNKNOWN) [Concomitant]
  5. FERROUS SULFATE (UNKNOWN) [Concomitant]
  6. FLEXERIL (CYCLOBENZAPRINE HYDROCHLORIDE) (UNKNOWN) [Concomitant]
  7. FLONASE (FLUTICASONE PROPIONATE) (UNKNOWN) [Concomitant]
  8. HYDROCODONE/ACETAMINOPHEN (REMEDEINE) (UNKNOWN) [Concomitant]
  9. IRON (UNKNOWN) [Concomitant]
  10. LORATADINE (UNKNOWN) [Concomitant]

REACTIONS (2)
  - Pneumonia [None]
  - Pulmonary embolism [None]
